FAERS Safety Report 5232376-X (Version None)
Quarter: 2007Q1

REPORT INFORMATION
  Report Type: 
  Country: None (occurrence: None)
  Receive Date: 20070205
  Receipt Date: 20070122
  Transmission Date: 20070707
  Serious: Yes (Death)
  Sender: FDA-Public Use
  Company Number: NASJP-07-0087

PATIENT
  Age: 69 Year
  Sex: Male

DRUGS (12)
  1. ROPIVACAINE (ROPIVACAINE) [Suspect]
     Indication: EPIDURAL ANAESTHESIA
     Dosage: EPIDURAL
     Route: 008
     Dates: start: 20030521, end: 20030521
  2. ROPIVACAINE (ROPIVACAINE) [Suspect]
     Indication: GENERAL ANAESTHESIA
     Dosage: EPIDURAL
     Route: 008
     Dates: start: 20030521, end: 20030521
  3. ROPIVACAINE (ROPIVACAINE) [Suspect]
     Indication: SEDATION
     Dosage: EPIDURAL
     Route: 008
     Dates: start: 20030521, end: 20030521
  4. FENTANET (FENTANYL CITRATE) [Concomitant]
  5. HALOPERIDOL [Concomitant]
  6. CLONAZEPAM [Concomitant]
  7. PHENYTOIN [Concomitant]
  8. PHENOBARBITAL TAB [Concomitant]
  9. ANNACA (CAFFEINE AND SODIUM BENZOATE) [Concomitant]
  10. HIRNAMIN (LEVOMEPROMAZINE) [Concomitant]
  11. DIAZEPAM [Concomitant]
  12. HIBERNIA (PROMETHAZINE HYDROCHLORIDE) [Concomitant]

REACTIONS (6)
  - AGITATION [None]
  - CARDIAC ARREST [None]
  - CATHETER RELATED COMPLICATION [None]
  - DEPRESSED LEVEL OF CONSCIOUSNESS [None]
  - POST PROCEDURAL COMPLICATION [None]
  - RESTLESSNESS [None]
